FAERS Safety Report 24096872 (Version 1)
Quarter: 2024Q3

REPORT INFORMATION
  Report Type: Spontaneous
  Country: US (occurrence: US)
  Receive Date: 20240716
  Receipt Date: 20240716
  Transmission Date: 20241016
  Serious: No
  Sender: GRIFOLS
  Company Number: US-IGSA-BIG0025940

PATIENT
  Age: 52 Year
  Sex: Male
  Weight: 103.4 kg

DRUGS (6)
  1. GAMUNEX-C [Suspect]
     Active Substance: HUMAN IMMUNOGLOBULIN G
     Indication: Chronic inflammatory demyelinating polyradiculoneuropathy
     Dosage: 20 GRAM, UNKNOWN
     Route: 042
     Dates: start: 20230915
  2. GAMUNEX-C [Suspect]
     Active Substance: HUMAN IMMUNOGLOBULIN G
     Dosage: 10 GRAM, UNKNOWN
     Route: 042
     Dates: start: 20230915
  3. GAMUNEX-C [Suspect]
     Active Substance: HUMAN IMMUNOGLOBULIN G
     Dosage: 1 GRAM, UNKNOWN
     Route: 042
     Dates: start: 20230915
  4. GAMUNEX-C [Suspect]
     Active Substance: HUMAN IMMUNOGLOBULIN G
     Dosage: 5 GRAM, UNKNOWN
     Route: 042
     Dates: start: 20230914
  5. GAMUNEX-C [Suspect]
     Active Substance: HUMAN IMMUNOGLOBULIN G
     Dosage: 8 MILLIGRAM/KILOGRAM
     Route: 042
     Dates: start: 20230914
  6. GAMUNEX-C [Suspect]
     Active Substance: HUMAN IMMUNOGLOBULIN G
     Dosage: UNK
     Route: 042
     Dates: start: 201906

REACTIONS (3)
  - Rash [Recovered/Resolved]
  - Urticaria [Recovered/Resolved]
  - Pruritus [Recovered/Resolved]

NARRATIVE: CASE EVENT DATE: 20230915
